FAERS Safety Report 5798500-5 (Version None)
Quarter: 2008Q3

REPORT INFORMATION
  Report Type: 
  Country: None (occurrence: None)
  Receive Date: 20080702
  Receipt Date: 20080627
  Transmission Date: 20090109
  Serious: Yes (Congenital Anomaly)
  Sender: FDA-Public Use
  Company Number: FR-MERCK-0709FRA00008

PATIENT
  Age: 0 Day
  Sex: Male
  Weight: 3 kg

DRUGS (4)
  1. COSOPT [Suspect]
     Indication: GLAUCOMA
     Route: 064
     Dates: start: 20050101, end: 20070824
  2. LATANOPROST [Concomitant]
     Indication: GLAUCOMA
     Route: 064
     Dates: start: 20061129, end: 20070914
  3. BRIMONIDINE TARTRATE [Concomitant]
     Indication: GLAUCOMA
     Route: 064
     Dates: start: 20050101
  4. TIMOPTIC [Concomitant]
     Indication: GLAUCOMA
     Route: 064
     Dates: start: 20070914, end: 20080228

REACTIONS (1)
  - URINARY TRACT MALFORMATION [None]
